FAERS Safety Report 4873349-6 (Version None)
Quarter: 2006Q1

REPORT INFORMATION
  Report Type: 
  Country: None (occurrence: None)
  Receive Date: 20060105
  Receipt Date: 20051223
  Transmission Date: 20060701
  Serious: Yes (Hospitalization)
  Sender: FDA-Public Use
  Company Number: US-ROCHE-430194

PATIENT
  Age: 48 Year
  Sex: Male

DRUGS (2)
  1. FUZEON [Suspect]
     Indication: DRUG USE FOR UNKNOWN INDICATION
     Dosage: ROUTE OF ADMINISTRATION REPORTED AS INJECTION.
     Route: 050
     Dates: start: 20050615, end: 20050615
  2. FUZEON [Suspect]
     Route: 050
     Dates: start: 20051215

REACTIONS (4)
  - ANAEMIA [None]
  - COUGH [None]
  - FEELING ABNORMAL [None]
  - PYREXIA [None]
